FAERS Safety Report 6594637-1 (Version None)
Quarter: 2010Q1

REPORT INFORMATION
  Report Type: 
  Country: None (occurrence: None)
  Receive Date: 20100222
  Receipt Date: 20091015
  Transmission Date: 20100710
  Serious: No
  Sender: FDA-Public Use
  Company Number: US-BRISTOL-MYERS SQUIBB COMPANY-14818926

PATIENT
  Age: 73 Year
  Sex: Female

DRUGS (7)
  1. TAXOL [Suspect]
     Indication: LUNG NEOPLASM MALIGNANT
  2. MULTI-VITAMINS [Concomitant]
  3. ASPIRIN [Concomitant]
  4. FOSAMAX [Concomitant]
  5. EYE DROPS [Concomitant]
  6. PROZAC [Concomitant]
  7. NEXIUM [Concomitant]

REACTIONS (2)
  - DRUG ADMINISTRATION ERROR [None]
  - NO ADVERSE EVENT [None]
